FAERS Safety Report 7557506-6 (Version None)
Quarter: 2011Q2

REPORT INFORMATION
  Report Type: 
  Country: None (occurrence: None)
  Receive Date: 20110620
  Receipt Date: 20110609
  Transmission Date: 20111010
  Serious: Yes (Other)
  Sender: FDA-Public Use
  Company Number: IT-JNJFOC-20110605857

PATIENT
  Age: 65 Year
  Sex: Male

DRUGS (14)
  1. BISOPROLOL FUMARATE [Concomitant]
     Route: 065
  2. ACETYL SALICYLIC ACID COMPOUND TAB [Concomitant]
     Route: 065
  3. WARFARIN SODIUM [Concomitant]
     Route: 065
  4. FENOFIBRATE [Concomitant]
     Route: 065
  5. AMIODARONE HYDROCHLORIDE [Concomitant]
     Route: 065
  6. PANTOPRAZOLE [Concomitant]
     Route: 065
  7. FUROSEMIDE [Concomitant]
     Route: 065
  8. INSULIN GLULISINE [Concomitant]
     Route: 065
  9. CANRENOIC ACID [Concomitant]
     Route: 065
  10. LEVOFLOXACIN [Suspect]
     Indication: PRODUCT USED FOR UNKNOWN INDICATION
     Route: 048
     Dates: start: 20110104, end: 20110108
  11. INSULIN GLARGINE [Concomitant]
     Route: 065
  12. DIGOXIN [Concomitant]
     Route: 065
  13. VALSARTAN [Concomitant]
     Route: 065
  14. OMEGA-3 TRIGLYCERIDES [Concomitant]
     Route: 065

REACTIONS (1)
  - DERMATITIS EXFOLIATIVE [None]
